FAERS Safety Report 17109017 (Version 1)
Quarter: 2019Q4

REPORT INFORMATION
  Report Type: Report from Study
  Country: US (occurrence: US)
  Receive Date: 20191203
  Receipt Date: 20191203
  Transmission Date: 20200122
  Serious: Yes (Hospitalization, Other)
  Sender: FDA-Public Use
  Company Number: US-GILEAD-2019-0437851

PATIENT
  Age: 20 Year
  Sex: Female

DRUGS (15)
  1. CREON [Concomitant]
     Active Substance: PANCRELIPASE AMYLASE\PANCRELIPASE LIPASE\PANCRELIPASE PROTEASE
  2. TOBI [Concomitant]
     Active Substance: TOBRAMYCIN
  3. OYSTER SHELL CALCIUM [Concomitant]
     Active Substance: CALCIUM
  4. MEPHYTON [Concomitant]
     Active Substance: PHYTONADIONE
  5. PROAIR HFA [Concomitant]
     Active Substance: ALBUTEROL SULFATE
  6. BISAC EVAC [Concomitant]
  7. HYPERSAL [Concomitant]
     Active Substance: SODIUM CHLORIDE
  8. VORICONAZOLE. [Concomitant]
     Active Substance: VORICONAZOLE
  9. AZTREONAM LYSINE [Suspect]
     Active Substance: AZTREONAM LYSINE
     Indication: CYSTIC FIBROSIS
     Dosage: 75 MG, TID, FOR 28 DAYS ON AND 28 DAYS OFF
     Route: 055
     Dates: start: 20190924, end: 20191024
  10. DORNASE ALFA. [Concomitant]
     Active Substance: DORNASE ALFA
  11. MVW COMPLETE FORMULATION D3000 [Concomitant]
  12. AZITHROMYCIN ANHYDROUS. [Concomitant]
     Active Substance: AZITHROMYCIN ANHYDROUS
  13. CETIRIZINE HYDROCHLORIDE. [Concomitant]
     Active Substance: CETIRIZINE HYDROCHLORIDE
  14. FLONASE [Concomitant]
     Active Substance: FLUTICASONE PROPIONATE
  15. MIRALAX [Concomitant]
     Active Substance: POLYETHYLENE GLYCOL 3350

REACTIONS (1)
  - Cystic fibrosis [Unknown]
